FAERS Safety Report 20645357 (Version 1)
Quarter: 2022Q1

REPORT INFORMATION
  Report Type: Spontaneous
  Country: JP (occurrence: JP)
  Receive Date: 20220328
  Receipt Date: 20220328
  Transmission Date: 20220423
  Serious: Yes (Other)
  Sender: FDA-Public Use
  Company Number: JP-Eisai-202113354_LUN_P_1

PATIENT
  Age: 21 Year
  Sex: Female

DRUGS (5)
  1. LUNESTA [Suspect]
     Active Substance: ESZOPICLONE
     Indication: Sleep disorder
     Dosage: 2 MG, HS
     Route: 048
     Dates: start: 20211130, end: 20211219
  2. LUNESTA [Suspect]
     Active Substance: ESZOPICLONE
     Dosage: THE DOSE WAS ADJUSTED TO ONE OR TWO TABLETS OF 1 MG.
     Route: 048
     Dates: start: 20211220, end: 20220303
  3. LEXAPRO [Concomitant]
     Active Substance: ESCITALOPRAM OXALATE
     Dosage: DOSE UNKNOWN
     Route: 048
  4. MOSAPRIDE CITRATE [Concomitant]
     Active Substance: MOSAPRIDE CITRATE
     Dosage: DOSE UNKNOWN
     Route: 048
     Dates: start: 20211120
  5. ESTROGENS\PROGESTERONE [Concomitant]
     Active Substance: ESTROGENS\PROGESTERONE
     Dosage: DOSE UNKNOWN
     Route: 065

REACTIONS (2)
  - Anterograde amnesia [Recovered/Resolved]
  - Somnambulism [Recovered/Resolved]

NARRATIVE: CASE EVENT DATE: 20220203
